FAERS Safety Report 7115528-3 (Version None)
Quarter: 2010Q4

REPORT INFORMATION
  Report Type: 
  Country: None (occurrence: None)
  Receive Date: 20101122
  Receipt Date: 20101006
  Transmission Date: 20110411
  Serious: No
  Sender: FDA-Public Use
  Company Number: US-BAYER-201024654NA

PATIENT
  Age: 51 Year
  Sex: Female

DRUGS (4)
  1. CLIMARA PRO [Suspect]
     Indication: AUTONOMIC NERVOUS SYSTEM IMBALANCE
     Dosage: STOP: JUN/JUL-2010
     Route: 062
     Dates: start: 20100501, end: 20100101
  2. CLIMARA PRO [Suspect]
     Dosage: STOP  JUN/JUL-2010 AND THEN RESTART
     Route: 062
     Dates: start: 20100101
  3. CLIMARA [Suspect]
     Indication: PRODUCT USED FOR UNKNOWN INDICATION
     Dosage: START-ENDING:JUN/JUL-2010
     Route: 062
     Dates: start: 20100101, end: 20100701
  4. UNKNOWN DRUG [Concomitant]
     Indication: FIBROMYALGIA

REACTIONS (10)
  - ABDOMINAL PAIN [None]
  - APPLICATION SITE ERYTHEMA [None]
  - APPLICATION SITE PRURITUS [None]
  - ERYTHEMA [None]
  - HYPERHIDROSIS [None]
  - METRORRHAGIA [None]
  - NAUSEA [None]
  - PRURITUS [None]
  - RASH [None]
  - SWEAT GLAND DISORDER [None]
